FAERS Safety Report 9312328 (Version 2)
Quarter: 2013Q2

REPORT INFORMATION
  Report Type: Spontaneous
  Country: RU (occurrence: RU)
  Receive Date: 20130528
  Receipt Date: 20130611
  Transmission Date: 20140414
  Serious: Yes (Hospitalization)
  Sender: FDA-Public Use
  Company Number: RU-JNJFOC-20130512386

PATIENT
  Age: 57 Year
  Sex: Female

DRUGS (10)
  1. DOXORUBICIN HYDROCHLORIDE (CAELYX) [Suspect]
     Indication: BREAST CANCER
     Route: 042
     Dates: start: 20130429, end: 20130504
  2. CYCLOPHOSPHANUM [Concomitant]
     Indication: BREAST CANCER
     Dosage: 2 COURSES
     Route: 065
  3. FLUOROURACIL [Concomitant]
     Indication: BREAST CANCER
     Dosage: 2 COURSES
     Route: 065
  4. DOXORUBICIN [Concomitant]
     Dosage: 2 COURSES
     Route: 065
  5. DOCETAXEL [Concomitant]
     Indication: BREAST CANCER
     Dosage: 2 COURSES
     Route: 065
  6. DOXORUBICIN [Concomitant]
     Indication: BREAST CANCER
     Dosage: 2 COURSES
     Route: 065
  7. DEXAMETASONE [Concomitant]
     Indication: PREMEDICATION
     Route: 065
  8. DIFLUCAN [Concomitant]
     Route: 065
  9. H2-BLOCKERS [Concomitant]
     Route: 065
  10. VINILIN [Concomitant]
     Route: 065

REACTIONS (4)
  - Stomatitis necrotising [Recovered/Resolved]
  - Palmar-plantar erythrodysaesthesia syndrome [Recovered/Resolved]
  - Vulvovaginal candidiasis [Recovered/Resolved]
  - Hyperthermia [Recovered/Resolved]
